FAERS Safety Report 7123001-1 (Version None)
Quarter: 2010Q4

REPORT INFORMATION
  Report Type: 
  Country: None (occurrence: None)
  Receive Date: 20101124
  Receipt Date: 20101111
  Transmission Date: 20110411
  Serious: Yes (Hospitalization)
  Sender: FDA-Public Use
  Company Number: ES-ELI_LILLY_AND_COMPANY-ES201011003257

PATIENT
  Sex: Female
  Weight: 65 kg

DRUGS (3)
  1. FORTEO [Suspect]
     Indication: OSTEOPOROSIS
     Dosage: 20 UG, DAILY (1/D)
     Route: 058
     Dates: start: 20100805, end: 20101030
  2. LEXATIN [Concomitant]
     Indication: ANXIETY
     Dosage: 1.5 MG, 2/D
  3. CALCIUM [Concomitant]

REACTIONS (1)
  - RECTAL HAEMORRHAGE [None]
